FAERS Safety Report 24372219 (Version 2)
Quarter: 2024Q3

REPORT INFORMATION
  Report Type: Spontaneous
  Country: IN (occurrence: IN)
  Receive Date: 20240927
  Receipt Date: 20240930
  Transmission Date: 20241016
  Serious: Yes (Life-Threatening, Hospitalization, Disabling, Other)
  Sender: PFIZER
  Company Number: IN-MLMSERVICE-20240918-PI194167-00059-1

PATIENT
  Age: 40 Year
  Sex: Male

DRUGS (5)
  1. TOFACITINIB [Suspect]
     Active Substance: TOFACITINIB
     Indication: Colitis ulcerative
     Dosage: 20 MG
  2. AZATHIOPRINE [Suspect]
     Active Substance: AZATHIOPRINE
     Indication: Colitis ulcerative
     Dosage: 1.5 MG/KG
  3. AZATHIOPRINE [Suspect]
     Active Substance: AZATHIOPRINE
     Indication: Colitis ulcerative
  4. INFLIXIMAB [Suspect]
     Active Substance: INFLIXIMAB
     Indication: Colitis ulcerative
     Dosage: 3 DOSES
  5. INFLIXIMAB [Suspect]
     Active Substance: INFLIXIMAB
     Indication: Colitis ulcerative

REACTIONS (5)
  - Bronchopulmonary aspergillosis [Unknown]
  - Disseminated aspergillosis [Unknown]
  - Central nervous system lesion [Unknown]
  - Generalised tonic-clonic seizure [Unknown]
  - Endophthalmitis [Unknown]
